FAERS Safety Report 10015578 (Version 3)
Quarter: 2014Q2

REPORT INFORMATION
  Report Type: Spontaneous
  Country: DK (occurrence: DK)
  Receive Date: 20140317
  Receipt Date: 20140403
  Transmission Date: 20141212
  Serious: Yes (Other)
  Sender: FDA-Public Use
  Company Number: CHNY2014DK000843

PATIENT
  Age: 66 Year
  Sex: Female

DRUGS (1)
  1. VOLTAREN [Suspect]
     Indication: PAIN
     Dosage: UNK, BID
     Route: 065
     Dates: start: 201402, end: 201402

REACTIONS (2)
  - Infected skin ulcer [Recovered/Resolved]
  - Erythema [Recovered/Resolved]
